FAERS Safety Report 9691141 (Version 2)
Quarter: 2013Q4

REPORT INFORMATION
  Report Type: Spontaneous
  Country: US (occurrence: US)
  Receive Date: 20131115
  Receipt Date: 20131129
  Transmission Date: 20140711
  Serious: Yes (Other)
  Sender: FDA-Public Use
  Company Number: US-AMGEN-USASP2013079449

PATIENT
  Age: 65 Year
  Sex: Female

DRUGS (13)
  1. PROLIA [Suspect]
     Indication: PRODUCT USED FOR UNKNOWN INDICATION
     Dosage: UNK
     Route: 065
  2. CARAFATE [Concomitant]
  3. OMEPRAZOLE [Concomitant]
  4. CALCIUM CITRATE [Concomitant]
  5. RANITIDINE [Concomitant]
  6. MAGNESIUM CITRATE [Concomitant]
  7. ENZYME DIGEST [Concomitant]
  8. PROBIOTIC                          /06395501/ [Concomitant]
  9. VAGIFEM [Concomitant]
  10. VITAMIN D                          /00107901/ [Concomitant]
  11. L-GLUTAMINIC ACID [Concomitant]
  12. TYLENOL                            /00020001/ [Concomitant]
  13. LACTAID [Concomitant]

REACTIONS (19)
  - Cardiac flutter [Recovered/Resolved]
  - Myocarditis [Unknown]
  - Headache [Recovered/Resolved]
  - Back pain [Recovered/Resolved]
  - Heart rate increased [Recovered/Resolved]
  - Rash generalised [Recovered/Resolved]
  - Pruritus generalised [Recovered/Resolved]
  - Myalgia [Recovered/Resolved]
  - Arthralgia [Recovered/Resolved]
  - Pain [Recovered/Resolved]
  - Muscle spasms [Recovered/Resolved]
  - Abdominal pain upper [Recovered/Resolved]
  - Fatigue [Recovered/Resolved]
  - Alopecia [Recovered/Resolved]
  - Hair colour changes [Recovered/Resolved]
  - Local swelling [Recovered/Resolved]
  - Vein disorder [Recovered/Resolved]
  - Fibromyalgia [Unknown]
  - Dyspepsia [Recovered/Resolved]
